FAERS Safety Report 16531664 (Version 6)
Quarter: 2019Q4

REPORT INFORMATION
  Report Type: Spontaneous
  Country: AU (occurrence: AU)
  Receive Date: 20190704
  Receipt Date: 20191125
  Transmission Date: 20200122
  Serious: Yes (Death, Life-Threatening, Other)
  Sender: FDA-Public Use
  Company Number: AU-009507513-1906AUS011608

PATIENT
  Age: 21 Year
  Sex: Male
  Weight: 60 kg

DRUGS (2)
  1. ROCURONIUM BROMIDE. [Suspect]
     Active Substance: ROCURONIUM BROMIDE
     Indication: MUSCLE RELAXANT THERAPY
     Dosage: UNK
     Dates: start: 20190526
  2. BRIDION [Suspect]
     Active Substance: SUGAMMADEX
     Indication: NEUROMUSCULAR BLOCKADE REVERSAL
     Dosage: 400 MILLIGRAM
     Dates: start: 20190526

REACTIONS (7)
  - Anaphylactic reaction [Unknown]
  - Cardiac arrest [Unknown]
  - Death [Fatal]
  - Pulmonary oedema [Unknown]
  - Bronchospasm [Unknown]
  - Aspiration [Unknown]
  - Brain injury [Unknown]

NARRATIVE: CASE EVENT DATE: 2019
